FAERS Safety Report 25534099 (Version 1)
Quarter: 2025Q3

REPORT INFORMATION
  Report Type: Spontaneous
  Country: US (occurrence: US)
  Receive Date: 20250709
  Receipt Date: 20250709
  Transmission Date: 20251020
  Serious: Yes (Life-Threatening, Hospitalization, Other)
  Sender: RISING PHARMACEUTICALS
  Company Number: US-RISINGPHARMA-US-2025RISLIT00313

PATIENT
  Age: 7 Decade
  Sex: Male

DRUGS (6)
  1. TEMOZOLOMIDE [Suspect]
     Active Substance: TEMOZOLOMIDE
     Indication: Glioblastoma multiforme
     Route: 065
  2. SULFAMETHOXAZOLE\TRIMETHOPRIM [Suspect]
     Active Substance: SULFAMETHOXAZOLE\TRIMETHOPRIM
     Indication: Antifungal prophylaxis
     Route: 065
  3. DEXAMETHASONE [Suspect]
     Active Substance: DEXAMETHASONE
     Indication: Product used for unknown indication
     Route: 065
  4. VANCOMYCIN [Concomitant]
     Active Substance: VANCOMYCIN
     Indication: Hypotension
     Route: 040
  5. AMPICILLIN [Concomitant]
     Active Substance: AMPICILLIN
     Indication: Hypotension
     Route: 040
  6. CEFTRIAXONE [Concomitant]
     Active Substance: CEFTRIAXONE
     Indication: Hypotension
     Route: 040

REACTIONS (6)
  - Encephalitis cytomegalovirus [Unknown]
  - CNS ventriculitis [Unknown]
  - Confusional state [Unknown]
  - Central nervous system infection [Unknown]
  - Lymphopenia [Unknown]
  - Pyrexia [Unknown]
